FAERS Safety Report 4758562-0 (Version None)
Quarter: 2005Q3

REPORT INFORMATION
  Report Type: 
  Country: None (occurrence: None)
  Receive Date: 20050826
  Receipt Date: 20050812
  Transmission Date: 20060218
  Serious: Yes (Hospitalization)
  Sender: FDA-Public Use
  Company Number: CAR-2005-015

PATIENT
  Sex: Male

DRUGS (1)
  1. SUCRALFATE [Suspect]
     Dosage: ORAL
     Route: 048
     Dates: start: 20030610

REACTIONS (3)
  - DYSPNOEA [None]
  - SOMNOLENCE [None]
  - VOMITING [None]
